FAERS Safety Report 8847440 (Version 2)
Quarter: 2012Q4

REPORT INFORMATION
  Report Type: Report from Study
  Country: JP (occurrence: JP)
  Receive Date: 20121018
  Receipt Date: 20121203
  Transmission Date: 20130627
  Serious: Yes (Other)
  Sender: FDA-Public Use
  Company Number: JP-VERTEX PHARMACEUTICAL INC.-2012-023058

PATIENT
  Age: 51 Year
  Sex: Male

DRUGS (10)
  1. VX-950 (TELAPREVIR) [Suspect]
     Indication: CHRONIC HEPATITIS C
     Dosage: 2250 mg, qd
     Route: 048
     Dates: start: 20120823, end: 20121003
  2. VX-950 (TELAPREVIR) [Suspect]
     Dosage: 1500 mg, qd
     Route: 048
     Dates: start: 20121004
  3. RIBAVIRIN [Suspect]
     Indication: CHRONIC HEPATITIS C
     Dosage: 800 mg, qd
     Route: 048
     Dates: start: 20120823, end: 20120912
  4. RIBAVIRIN [Suspect]
     Dosage: 400 mg, qd
     Route: 048
     Dates: start: 20120913, end: 20121017
  5. RIBAVIRIN [Suspect]
     Dosage: 200 mg, qd
     Route: 048
     Dates: start: 20121018
  6. PEGINTERFERON ALFA-2B [Suspect]
     Indication: CHRONIC HEPATITIS C
     Dosage: 1.5 ?g/kg, qw
     Route: 058
     Dates: start: 20120823, end: 20121025
  7. PEGINTERFERON ALFA-2B [Suspect]
     Dosage: 1.36 ?g/kg, qw
     Route: 058
     Dates: start: 20121101
  8. ALOSITOL [Suspect]
     Indication: ADVERSE EVENT
     Dosage: 200 mg, qd
     Route: 048
     Dates: start: 20120827, end: 20121003
  9. LOXONIN [Concomitant]
     Dosage: 60 mg, prn
     Route: 048
     Dates: start: 20120823
  10. MUCOSTA [Concomitant]
     Dosage: 300 mg, qd
     Route: 048
     Dates: start: 20120823

REACTIONS (1)
  - Skin exfoliation [Recovered/Resolved]
